FAERS Safety Report 7796499-3 (Version None)
Quarter: 2011Q4

REPORT INFORMATION
  Report Type: 
  Country: None (occurrence: None)
  Receive Date: 20111005
  Receipt Date: 20110929
  Transmission Date: 20120403
  Serious: No
  Sender: FDA-Public Use
  Company Number: US-PFIZER INC-2011232953

PATIENT
  Sex: Male

DRUGS (1)
  1. DEPO-TESTOSTERONE [Suspect]
     Indication: BLOOD TESTOSTERONE DECREASED
     Dosage: 200 MG, ONCE IN EVERY 2 WEEKS
     Route: 030
     Dates: start: 20110101

REACTIONS (5)
  - ASTHENIA [None]
  - HAIR GROWTH ABNORMAL [None]
  - MUSCULAR WEAKNESS [None]
  - BODY FAT DISORDER [None]
  - BLOOD TESTOSTERONE ABNORMAL [None]
